FAERS Safety Report 7269698-7 (Version None)
Quarter: 2011Q1

REPORT INFORMATION
  Report Type: 
  Country: None (occurrence: None)
  Receive Date: 20110202
  Receipt Date: 20110128
  Transmission Date: 20110831
  Serious: No
  Sender: FDA-Public Use
  Company Number: US-JNJFOC-20110108076

PATIENT
  Age: 64 Year
  Sex: Female

DRUGS (13)
  1. SIMVASTATIN [Concomitant]
     Indication: BLOOD CHOLESTEROL ABNORMAL
     Route: 048
  2. HYDROMORPHONE HCL [Concomitant]
     Indication: PAIN
     Route: 048
  3. TRAZODONE HCL [Concomitant]
     Indication: DEPRESSION
     Route: 048
  4. TOPAMAX [Concomitant]
     Route: 048
  5. ASPIRIN [Concomitant]
     Indication: CARDIAC DISORDER
     Route: 048
  6. SENNA ALEXANDRINA [Concomitant]
     Indication: CONSTIPATION
     Route: 048
  7. ATENOLOL [Concomitant]
     Indication: CARDIAC DISORDER
     Route: 048
  8. CYMBALTA [Concomitant]
     Indication: DEPRESSION
     Route: 048
  9. DYNACIRC [Concomitant]
     Indication: BLOOD PRESSURE ABNORMAL
     Route: 048
  10. WELLBUTRIN [Concomitant]
     Indication: DEPRESSION
     Route: 048
  11. DURAGESIC-50 [Suspect]
     Indication: NECK PAIN
     Route: 062
  12. LEVOTHYROXINE [Concomitant]
     Indication: THYROID DISORDER
     Route: 048
  13. SOMA [Concomitant]
     Indication: MUSCLE SPASMS
     Route: 048

REACTIONS (3)
  - DRUG DOSE OMISSION [None]
  - MEMORY IMPAIRMENT [None]
  - PAIN [None]
